FAERS Safety Report 6298816-2 (Version None)
Quarter: 2009Q3

REPORT INFORMATION
  Report Type: 
  Country: None (occurrence: None)
  Receive Date: 20090806
  Receipt Date: 20090724
  Transmission Date: 20100115
  Serious: Yes (Hospitalization, Other)
  Sender: FDA-Public Use
  Company Number: US-PFIZER INC-2009239629

PATIENT
  Sex: Female

DRUGS (7)
  1. SOLU-MEDROL [Suspect]
     Indication: MULTIPLE SCLEROSIS RELAPSE
     Dosage: 1000 MG, UNK
     Route: 042
     Dates: start: 20090629, end: 20090702
  2. INTERFERON BETA-1A [Suspect]
     Indication: MULTIPLE SCLEROSIS
     Dosage: 44 MCG, 3 IN 1 WEEKS
     Route: 058
     Dates: start: 20060705
  3. LEXAPRO [Concomitant]
     Indication: DEPRESSION
     Dosage: 30 MG, UNK
  4. ATENOLOL [Concomitant]
     Indication: PALPITATIONS
  5. KLONOPIN [Concomitant]
     Indication: ANXIETY
     Dosage: UNK
  6. VISTARIL [Concomitant]
     Indication: PREMEDICATION
     Dosage: 25 MG, UNK
     Dates: start: 20060101
  7. IBUPROFEN [Concomitant]
     Indication: PREMEDICATION
     Dosage: UNK
     Dates: start: 20060101

REACTIONS (7)
  - BLOOD GLUCOSE INCREASED [None]
  - CRYING [None]
  - ERYTHEMA [None]
  - HYPERHIDROSIS [None]
  - INSOMNIA [None]
  - MULTIPLE SCLEROSIS RELAPSE [None]
  - PSYCHOMOTOR HYPERACTIVITY [None]
